FAERS Safety Report 12046075 (Version 1)
Quarter: 2016Q1

REPORT INFORMATION
  Report Type: Spontaneous
  Country: US (occurrence: US)
  Receive Date: 20160209
  Receipt Date: 20160209
  Transmission Date: 20160526
  Serious: No
  Sender: FDA-Public Use
  Company Number: US-PAR PHARMACEUTICAL, INC-2015SCPR014200

PATIENT

DRUGS (10)
  1. BUPROPION HYDROCHLORIDE XL [Suspect]
     Active Substance: BUPROPION HYDROCHLORIDE
     Indication: BIPOLAR DISORDER
  2. BUPROPION HYDROCHLORIDE XL [Suspect]
     Active Substance: BUPROPION HYDROCHLORIDE
     Indication: DEPRESSION
     Dosage: 3 DF, OD IN THE MORNING
     Route: 048
     Dates: start: 201405, end: 2015
  3. BUPROPION HYDROCHLORIDE XL [Suspect]
     Active Substance: BUPROPION HYDROCHLORIDE
     Indication: MANIA
  4. MULTIVITAMINS [Concomitant]
     Active Substance: VITAMINS
     Indication: WEIGHT ABNORMAL
     Dosage: 1 DF, BID
     Route: 048
  5. PROBIOTIC                          /06395501/ [Concomitant]
     Active Substance: BIFIDOBACTERIUM ANIMALIS SUBSP. LACTIS
     Indication: PRODUCT USED FOR UNKNOWN INDICATION
     Dosage: UNK UNK, UNKNOWN
     Route: 065
  6. CALCIUM MAGNESIUM                  /01412301/ [Concomitant]
     Indication: WEIGHT ABNORMAL
     Dosage: 2 DF, BID
     Route: 048
  7. CARBAMAZEPINE. [Concomitant]
     Active Substance: CARBAMAZEPINE
     Indication: BIPOLAR DISORDER
  8. POTASSIUM [Concomitant]
     Active Substance: POTASSIUM
     Indication: WEIGHT ABNORMAL
     Dosage: 1 DF, BID
     Route: 048
  9. CARBAMAZEPINE. [Concomitant]
     Active Substance: CARBAMAZEPINE
     Indication: MANIA
     Dosage: 1 DF, BID
     Route: 048
  10. OMEGA 3                            /01334101/ [Concomitant]
     Active Substance: OMEGA-3 FATTY ACIDS
     Indication: WEIGHT ABNORMAL
     Dosage: 2 DF, OD
     Route: 048

REACTIONS (3)
  - Medication residue present [Recovering/Resolving]
  - Drug ineffective [Not Recovered/Not Resolved]
  - Product quality issue [Unknown]

NARRATIVE: CASE EVENT DATE: 2015
